FAERS Safety Report 4820559-X (Version None)
Quarter: 2005Q4

REPORT INFORMATION
  Report Type: 
  Country: None (occurrence: None)
  Receive Date: 20051104
  Receipt Date: 20051019
  Transmission Date: 20060501
  Serious: Yes (Other)
  Sender: FDA-Public Use
  Company Number: PHNU2005DE03504

PATIENT
  Age: 53 Year
  Sex: Male
  Weight: 67 kg

DRUGS (3)
  1. VITAMINS NOS [Concomitant]
  2. DIOVAN [Suspect]
     Indication: HYPERTENSION
     Dosage: 80 MG, QD
     Dates: start: 20050915, end: 20051014
  3. DIOVAN [Suspect]
     Dosage: 160 MG, QD
     Dates: start: 20051015, end: 20051018

REACTIONS (2)
  - BLOOD PRESSURE INCREASED [None]
  - PARADOXICAL PRESSOR RESPONSE [None]
